FAERS Safety Report 13402444 (Version 3)
Quarter: 2017Q3

REPORT INFORMATION
  Report Type: Report from Study
  Country: MX (occurrence: MX)
  Receive Date: 20170404
  Receipt Date: 20170815
  Transmission Date: 20171127
  Serious: Yes (Other)
  Sender: FDA-Public Use
  Company Number: PHHY2017MX036441

PATIENT
  Age: 44 Year
  Sex: Female
  Weight: 81 kg

DRUGS (2)
  1. TRILEPTAL [Suspect]
     Active Substance: OXCARBAZEPINE
     Indication: EPILEPSY
  2. TRILEPTAL [Suspect]
     Active Substance: OXCARBAZEPINE
     Indication: SEIZURE
     Dosage: 4 DF, QD (10 YEARS AGO APPROXIMATELY)
     Route: 065

REACTIONS (23)
  - Nephrolithiasis [Unknown]
  - Seizure [Recovered/Resolved]
  - Body temperature abnormal [Unknown]
  - Fear of death [Not Recovered/Not Resolved]
  - Diarrhoea [Unknown]
  - Seizure [Not Recovered/Not Resolved]
  - Gastritis [Unknown]
  - Tension [Recovering/Resolving]
  - Insomnia [Not Recovered/Not Resolved]
  - Irritability [Recovering/Resolving]
  - Uterine leiomyoma [Unknown]
  - Anger [Unknown]
  - Colitis [Unknown]
  - Abdominal discomfort [Unknown]
  - Suicidal ideation [Unknown]
  - Loss of consciousness [Recovered/Resolved]
  - Head discomfort [Unknown]
  - Vomiting [Unknown]
  - Bite [Recovered/Resolved]
  - Memory impairment [Unknown]
  - Anxiety [Unknown]
  - Depression [Not Recovered/Not Resolved]
  - Abnormal behaviour [Unknown]

NARRATIVE: CASE EVENT DATE: 20170313
